FAERS Safety Report 9847294 (Version 1)
Quarter: 2014Q1

REPORT INFORMATION
  Report Type: Spontaneous
  Country: PT (occurrence: PT)
  Receive Date: 20140127
  Receipt Date: 20140127
  Transmission Date: 20141002
  Serious: Yes (Life-Threatening, Hospitalization, Other)
  Sender: FDA-Public Use
  Company Number: PT-B.I. PHARMACEUTICALS,INC./RIDGEFIELD-2014-BI-03620PO

PATIENT
  Age: 59 Year
  Sex: Male

DRUGS (2)
  1. PRADAXA [Suspect]
     Indication: ATRIAL FIBRILLATION
     Dosage: 220 MG
     Dates: end: 20131007
  2. AAS / ACETYLSALICYLIC ACID [Concomitant]

REACTIONS (4)
  - Upper gastrointestinal haemorrhage [Recovered/Resolved]
  - Gastritis [Recovered/Resolved]
  - Duodenitis [Recovered/Resolved]
  - Shock [Recovered/Resolved]
